FAERS Safety Report 6182211-0 (Version None)
Quarter: 2009Q2

REPORT INFORMATION
  Report Type: 
  Country: None (occurrence: None)
  Receive Date: 20090505
  Receipt Date: 20090427
  Transmission Date: 20091009
  Serious: Yes (Other)
  Sender: FDA-Public Use
  Company Number: 2005JP001905

PATIENT
  Age: 2 Year
  Sex: Male

DRUGS (5)
  1. PROGRAF [Suspect]
     Indication: BONE MARROW TRANSPLANT
  2. METHOTREXATE [Concomitant]
  3. PREDNISOLONE [Concomitant]
  4. BUCILLAMINE (BUCILLAMINE) [Concomitant]
  5. FLUDARABINE PHOSPHATE [Concomitant]

REACTIONS (5)
  - ARTHRITIS [None]
  - HUMAN HERPESVIRUS 6 INFECTION [None]
  - OSTEOMYELITIS [None]
  - RENAL ABSCESS [None]
  - TRANSPLANT [None]
